FAERS Safety Report 5556765-9 (Version None)
Quarter: 2007Q4

REPORT INFORMATION
  Report Type: 
  Country: None (occurrence: None)
  Receive Date: 20071130
  Receipt Date: 20070723
  Transmission Date: 20080405
  Serious: No
  Sender: FDA-Public Use
  Company Number: 2006PV026468

PATIENT
  Age: 46 Year
  Sex: Male
  Weight: 113.4 kg

DRUGS (5)
  1. EXENATIDE(EXENATIDE) PEN,DISPOSABLE [Suspect]
     Indication: TYPE 2 DIABETES MELLITUS
     Dosage: 10 UG, 2/D, SUBCUTANEOUS; 5 UG, 2/D SUBCUTANEOUS
     Route: 058
     Dates: start: 20060801, end: 20060901
  2. EXENATIDE(EXENATIDE) PEN,DISPOSABLE [Suspect]
     Indication: TYPE 2 DIABETES MELLITUS
     Dosage: 10 UG, 2/D, SUBCUTANEOUS; 5 UG, 2/D SUBCUTANEOUS
     Route: 058
     Dates: start: 20060901
  3. METFORMIN HCL [Concomitant]
  4. JANUVIA [Concomitant]
  5. AVANDAMET [Concomitant]

REACTIONS (4)
  - BLOOD CHOLESTEROL DECREASED [None]
  - INJECTION SITE BRUISING [None]
  - INJECTION SITE IRRITATION [None]
  - WEIGHT DECREASED [None]
